FAERS Safety Report 8432621-3 (Version None)
Quarter: 2012Q2

REPORT INFORMATION
  Report Type: 
  Country: None (occurrence: None)
  Receive Date: 20120613
  Receipt Date: 20120606
  Transmission Date: 20120825
  Serious: Yes (Hospitalization)
  Sender: FDA-Public Use
  Company Number: US-ABBOTT-12P-163-0935012-00

PATIENT
  Age: 43 Year
  Sex: Female

DRUGS (7)
  1. MULTI-VITAMIN [Concomitant]
     Indication: VITAMIN SUPPLEMENTATION
  2. HUMIRA [Suspect]
     Indication: CROHN'S DISEASE
     Dosage: LOADING DOSE
     Dates: start: 20120428, end: 20120428
  3. ALBUTEROL [Concomitant]
     Indication: PRODUCT USED FOR UNKNOWN INDICATION
     Dosage: PRN BUT DOES NOT NEED OFTEN, AS NEEDED
  4. LANSOPRAZOLE [Concomitant]
     Indication: DYSPEPSIA
  5. SUDAFED 12 HOUR [Concomitant]
     Indication: RESPIRATORY TRACT CONGESTION
  6. PREDNISONE TAB [Concomitant]
     Indication: CROHN'S DISEASE
     Dosage: TAPERING DAILY DOSE
  7. THEOPHYLLINE [Concomitant]
     Indication: ASTHMA

REACTIONS (11)
  - HYPOAESTHESIA [None]
  - PYREXIA [None]
  - NUCLEAR MAGNETIC RESONANCE IMAGING ABNORMAL [None]
  - INFLUENZA [None]
  - BLOOD POTASSIUM DECREASED [None]
  - ORAL MUCOSAL BLISTERING [None]
  - HEADACHE [None]
  - ARTHRALGIA [None]
  - BLOOD PRESSURE INCREASED [None]
  - MUSCULAR WEAKNESS [None]
  - OROPHARYNGEAL PAIN [None]
